FAERS Safety Report 4299122-8 (Version None)
Quarter: 2004Q1

REPORT INFORMATION
  Report Type: 
  Country: None (occurrence: None)
  Receive Date: 20040217
  Receipt Date: 20040129
  Transmission Date: 20041129
  Serious: Yes (Hospitalization)
  Sender: FDA-Public Use
  Company Number: K200400116

PATIENT
  Age: 74 Year
  Sex: Female

DRUGS (5)
  1. ALTACE [Suspect]
     Indication: HYPERTENSION
     Dosage: 5 MG, QD, ORAL
     Route: 048
     Dates: start: 20020101
  2. INSULIN ACTRAPHANE (INSULIN HUMAN INJECTION, ISOPHANE)SOLUTION, 28-0-2 [Suspect]
     Indication: DIABETES MELLITUS NON-INSULIN-DEPENDENT
     Dosage: 28-0-20 IU, QD, SUBCUTANEOUS
     Route: 058
     Dates: start: 20020101, end: 20031101
  3. ACTRAPID HUMAN (INSULIN HUMAN) SOLUTION, 10IU [Suspect]
     Indication: DIABETES MELLITUS NON-INSULIN-DEPENDENT
     Dosage: 10 IU, QD, SUBCUTANEOUS
     Route: 058
     Dates: start: 20020101, end: 20031101
  4. NEBILET (NEBIVOLOL HYDROCHLORIDE) TABLET 5MG [Suspect]
     Indication: HYPERTENSION
     Dosage: 5 MG, QD, ORAL
     Route: 048
     Dates: start: 20020101
  5. XIPAMIDE (XIPAMIDE) TABLET, 40 MG [Concomitant]

REACTIONS (5)
  - ALBUMINURIA [None]
  - ANOREXIA [None]
  - COMA [None]
  - MARKEDLY REDUCED DIETARY INTAKE [None]
  - SHOCK HYPOGLYCAEMIC [None]
